FAERS Safety Report 21992681 (Version 2)
Quarter: 2023Q1

REPORT INFORMATION
  Report Type: Spontaneous
  Country: US (occurrence: US)
  Receive Date: 20230215
  Receipt Date: 20230220
  Transmission Date: 20230418
  Serious: Yes (Disabling, Other)
  Sender: FDA-Public Use
  Company Number: US-SA-SAC20230214000247

PATIENT
  Age: 60 Year
  Sex: Female

DRUGS (3)
  1. AUBAGIO [Suspect]
     Active Substance: TERIFLUNOMIDE
     Indication: Multiple sclerosis
     Dosage: 14 MG, QD
     Route: 048
     Dates: start: 2013
  2. MORPHINE SULFATE [Concomitant]
     Active Substance: MORPHINE SULFATE
     Dosage: UNK
  3. MORPHINE [Concomitant]
     Active Substance: MORPHINE

REACTIONS (8)
  - Walking aid user [Unknown]
  - Multiple sclerosis [Unknown]
  - Drug ineffective [Unknown]
  - Fall [Unknown]
  - Malaise [Unknown]
  - Hepatic pain [Unknown]
  - Depressed mood [Unknown]
  - Urinary tract infection [Unknown]
